FAERS Safety Report 12180281 (Version 3)
Quarter: 2016Q4

REPORT INFORMATION
  Report Type: Spontaneous
  Country: JP (occurrence: JP)
  Receive Date: 20160315
  Receipt Date: 20161004
  Transmission Date: 20170207
  Serious: Yes (Congenital Anomaly)
  Sender: FDA-Public Use
  Company Number: PHJP2016JP005323

PATIENT

DRUGS (4)
  1. PHENYTOIN. [Suspect]
     Active Substance: PHENYTOIN
     Indication: FOETAL EXPOSURE DURING PREGNANCY
     Dosage: MOTHER DOSE: 150 MG/DAY
     Route: 064
  2. MEPHOBARBITAL. [Suspect]
     Active Substance: MEPHOBARBITAL
     Indication: FOETAL EXPOSURE DURING PREGNANCY
     Dosage: MOTHER DOSE: 350 MG/DAY
     Route: 064
  3. PRIMIDONE. [Suspect]
     Active Substance: PRIMIDONE
     Indication: FOETAL EXPOSURE DURING PREGNANCY
     Dosage: MOTHER DOSE: 600 MG/DAY
     Route: 064
  4. CARBAMAZEPINE. [Suspect]
     Active Substance: CARBAMAZEPINE
     Indication: FOETAL EXPOSURE DURING PREGNANCY
     Dosage: MOTHER DOSE: 600 MG/DAY
     Route: 064

REACTIONS (2)
  - Strabismus [Unknown]
  - Foetal exposure during pregnancy [Unknown]
